FAERS Safety Report 23275023 (Version 1)
Quarter: 2023Q4

REPORT INFORMATION
  Report Type: Spontaneous
  Country: US (occurrence: None)
  Receive Date: 20231208
  Receipt Date: 20231208
  Transmission Date: 20240110
  Serious: Yes (Other)
  Sender: FDA-Public Use
  Company Number: 2023A275169

PATIENT
  Sex: Male

DRUGS (1)
  1. IMFINZI [Suspect]
     Active Substance: DURVALUMAB

REACTIONS (5)
  - Lung disorder [Unknown]
  - Lung carcinoma cell type unspecified stage III [Unknown]
  - Nausea [Unknown]
  - Pyrexia [Unknown]
  - Feeling abnormal [Unknown]
